FAERS Safety Report 21419198 (Version 7)
Quarter: 2023Q4

REPORT INFORMATION
  Report Type: Report from Study
  Country: TW (occurrence: TW)
  Receive Date: 20221006
  Receipt Date: 20231027
  Transmission Date: 20240110
  Serious: Yes (Hospitalization)
  Sender: FDA-Public Use
  Company Number: TW-PFIZER INC-PV202200072881

PATIENT
  Age: 68 Year
  Sex: Female
  Weight: 51.7 kg

DRUGS (14)
  1. ENCORAFENIB [Suspect]
     Active Substance: ENCORAFENIB
     Indication: Colorectal cancer metastatic
     Dosage: 300 MG, ONCE DAILY
     Route: 048
     Dates: start: 20220425, end: 20220927
  2. CETUXIMAB [Suspect]
     Active Substance: CETUXIMAB
     Indication: Colorectal cancer metastatic
     Dosage: 735 MG, EVERY 2 WEEKS
     Route: 042
     Dates: start: 20220425, end: 20220919
  3. FLUOROURACIL [Suspect]
     Active Substance: FLUOROURACIL
     Indication: Colorectal cancer metastatic
     Dosage: 588 MG, EVERY 2 WEEKS
     Route: 040
     Dates: start: 20220425, end: 20220921
  4. FLUOROURACIL [Suspect]
     Active Substance: FLUOROURACIL
     Dosage: 3528 MG, EVERY 2 WEEKS
     Route: 042
     Dates: start: 20220425, end: 20220921
  5. OXALIPLATIN [Suspect]
     Active Substance: OXALIPLATIN
     Indication: Colorectal cancer metastatic
     Dosage: 124.95 MG, EVERY 2 WEEKS
     Route: 042
     Dates: start: 20220425, end: 20220919
  6. LEUCOVORIN [Suspect]
     Active Substance: LEUCOVORIN\LEUCOVORIN CALCIUM
     Indication: Colorectal cancer metastatic
     Dosage: 588 MG, EVERY 2 WEEKS
     Route: 042
     Dates: start: 20220425, end: 20220919
  7. IBUPROFEN [Concomitant]
     Active Substance: IBUPROFEN
     Indication: Carbuncle
     Dosage: 400 MG, 3X/DAY
     Route: 048
     Dates: start: 20220912
  8. IBUPROFEN [Concomitant]
     Active Substance: IBUPROFEN
     Indication: Cellulitis
  9. NEOMYCIN/TYROTHRICIN [Concomitant]
     Indication: Carbuncle
     Dosage: 1 SUFFICIENT QUANTITY (QS), 2X/DAY
     Route: 061
     Dates: start: 20220912
  10. NEOMYCIN/TYROTHRICIN [Concomitant]
     Indication: Cellulitis
  11. AMOXICILLIN\CLAVULANIC ACID [Concomitant]
     Active Substance: AMOXICILLIN\CLAVULANIC ACID
     Indication: Carbuncle
     Dosage: 1 TAB, 2X/DAY
     Route: 048
     Dates: start: 20220912, end: 20220919
  12. AMOXICILLIN\CLAVULANIC ACID [Concomitant]
     Active Substance: AMOXICILLIN\CLAVULANIC ACID
     Indication: Cellulitis
  13. DEXAMETHASONE PHOSPHATE [Concomitant]
     Active Substance: DEXAMETHASONE PHOSPHATE
     Indication: Premedication
     Dosage: 2 AMP, STAT
     Route: 042
     Dates: start: 20220919, end: 20220919
  14. AKYNZEO (NETUPITANT\PALONOSETRON) [Concomitant]
     Active Substance: NETUPITANT\PALONOSETRON
     Indication: Premedication
     Dosage: 1 CAP, STAT
     Route: 048
     Dates: start: 20220919, end: 20220919

REACTIONS (3)
  - Diabetic ketoacidosis [Recovered/Resolved]
  - Hyperglycaemia [Recovered/Resolved]
  - Ascites [Recovered/Resolved]

NARRATIVE: CASE EVENT DATE: 20220922
